FAERS Safety Report 4814228-X (Version None)
Quarter: 2005Q4

REPORT INFORMATION
  Report Type: 
  Country: None (occurrence: None)
  Receive Date: 20051028
  Receipt Date: 20050722
  Transmission Date: 20060501
  Serious: No
  Sender: FDA-Public Use
  Company Number: US-GLAXOSMITHKLINE-A0567267A

PATIENT
  Age: 36 Year
  Sex: Female

DRUGS (10)
  1. ADVAIR DISKUS 100/50 [Suspect]
     Indication: ASTHMA
     Dosage: 1PUFF PER DAY
     Route: 055
     Dates: start: 20050705
  2. NASONEX [Concomitant]
  3. ALBUTEROL [Concomitant]
  4. PROTONIX [Concomitant]
  5. METFORMIN HCL [Concomitant]
  6. ENALAPRIL [Concomitant]
  7. LEVOTHYROXINE [Concomitant]
  8. QUININE SULFATE [Concomitant]
  9. PREDNISONE [Concomitant]
  10. TEARS NATURALE II [Concomitant]

REACTIONS (4)
  - AGEUSIA [None]
  - DRUG INEFFECTIVE [None]
  - HYPOAESTHESIA ORAL [None]
  - PHARYNGEAL HYPOAESTHESIA [None]
